FAERS Safety Report 9429569 (Version 1)
Quarter: 2013Q3

REPORT INFORMATION
  Report Type: Spontaneous
  Country: US (occurrence: US)
  Receive Date: 20130730
  Receipt Date: 20130730
  Transmission Date: 20140515
  Serious: No
  Sender: FDA-Public Use
  Company Number: US-ABBOTT-13P-163-1065410-00

PATIENT
  Sex: Male
  Weight: 108.96 kg

DRUGS (10)
  1. NIASPAN (COATED) [Suspect]
     Indication: BLOOD CHOLESTEROL INCREASED
     Dates: start: 2007, end: 2007
  2. NIASPAN (COATED) [Suspect]
     Dates: start: 2007, end: 2007
  3. NIASPAN (COATED) [Suspect]
     Dates: start: 2007, end: 2007
  4. NIASPAN (COATED) [Suspect]
     Dates: start: 2008
  5. COLESTIPOL [Concomitant]
     Indication: BLOOD CHOLESTEROL INCREASED
  6. PLAVIX [Concomitant]
     Indication: THROMBOSIS PROPHYLAXIS
  7. ANTIHYPERTENSIVES [Concomitant]
     Indication: HYPERTENSION
  8. RANITIDINE [Concomitant]
     Indication: GASTROOESOPHAGEAL REFLUX DISEASE
  9. DIURETICS [Concomitant]
     Indication: HYPERTENSION
  10. UNKNOWN DIABETIC MEDICATION [Concomitant]
     Indication: DIABETES MELLITUS

REACTIONS (5)
  - Medication residue present [Not Recovered/Not Resolved]
  - Flushing [Not Recovered/Not Resolved]
  - Product lot number issue [Unknown]
  - Product expiration date issue [Unknown]
  - Wrong technique in drug usage process [Unknown]
